FAERS Safety Report 4783868-9 (Version None)
Quarter: 2005Q3

REPORT INFORMATION
  Report Type: 
  Country: None (occurrence: None)
  Receive Date: 20050929
  Receipt Date: 20050927
  Transmission Date: 20060218
  Serious: Yes (Other)
  Sender: FDA-Public Use
  Company Number: US-MERCK-0509USA04298

PATIENT
  Age: 61 Year
  Sex: Female

DRUGS (4)
  1. FOSAMAX [Suspect]
     Indication: OSTEOPOROSIS PROPHYLAXIS
     Route: 048
     Dates: start: 20030101, end: 20050926
  2. EFFEXOR [Concomitant]
     Route: 065
  3. LIPITOR [Concomitant]
     Route: 065
  4. VOLTAREN [Concomitant]
     Route: 065

REACTIONS (1)
  - ASEPTIC NECROSIS BONE [None]
